FAERS Safety Report 4314628-0 (Version None)
Quarter: 2004Q1

REPORT INFORMATION
  Report Type: 
  Country: None (occurrence: None)
  Receive Date: 20040308
  Receipt Date: 20040219
  Transmission Date: 20041129
  Serious: Yes (Hospitalization)
  Sender: FDA-Public Use
  Company Number: DSA_24028_2004

PATIENT
  Age: 58 Year
  Sex: Male

DRUGS (2)
  1. TILDIEM [Suspect]
     Indication: HYPERTENSION
     Dates: start: 20040202, end: 20040202
  2. TILDIEM [Suspect]
     Indication: HYPERTENSION
     Dosage: 60 MG Q DAY PO
     Route: 048

REACTIONS (7)
  - ANURIA [None]
  - BLOOD PRESSURE DECREASED [None]
  - COMA [None]
  - DIALYSIS [None]
  - HAEMODYNAMIC INSTABILITY [None]
  - INTENTIONAL OVERDOSE [None]
  - SUICIDE ATTEMPT [None]
